FAERS Safety Report 13260370 (Version 1)
Quarter: 2017Q1

REPORT INFORMATION
  Report Type: Spontaneous
  Country: GB (occurrence: GB)
  Receive Date: 20170222
  Receipt Date: 20170222
  Transmission Date: 20170428
  Serious: Yes (Other)
  Sender: FDA-Public Use
  Company Number: GB-B. BRAUN MEDICAL INC.-1063437

PATIENT
  Age: 6 Month
  Sex: Male

DRUGS (2)
  1. DEXTROSE. [Suspect]
     Active Substance: DEXTROSE
     Dates: start: 20161020, end: 20161020
  2. SODIUM CHLORIDE. [Suspect]
     Active Substance: SODIUM CHLORIDE
     Dates: start: 20161020, end: 20161020

REACTIONS (5)
  - Tachycardia [Unknown]
  - Laboratory test abnormal [Unknown]
  - Lip dry [Unknown]
  - Product preparation error [Unknown]
  - Vomiting [Unknown]
